FAERS Safety Report 15569699 (Version 5)
Quarter: 2019Q2

REPORT INFORMATION
  Report Type: Spontaneous
  Country: US (occurrence: US)
  Receive Date: 20181031
  Receipt Date: 20190411
  Transmission Date: 20190711
  Serious: Yes (Other)
  Sender: FDA-Public Use
  Company Number: US-PFIZER INC-2018442218

PATIENT
  Age: 80 Year
  Sex: Female

DRUGS (2)
  1. SKELAXIN [Suspect]
     Active Substance: METAXALONE
     Dosage: UNK
  2. ARTHROTEC [Suspect]
     Active Substance: DICLOFENAC SODIUM\MISOPROSTOL
     Dosage: UNK

REACTIONS (3)
  - Weight increased [Unknown]
  - Drug hypersensitivity [Unknown]
  - Anaphylactic reaction [Unknown]
